FAERS Safety Report 18442523 (Version 1)
Quarter: 2020Q4

REPORT INFORMATION
  Report Type: Spontaneous
  Country: BR (occurrence: BR)
  Receive Date: 20201029
  Receipt Date: 20201029
  Transmission Date: 20210114
  Serious: Yes (Other)
  Sender: FDA-Public Use
  Company Number: BR-BAUSCH-BL-2020-030838

PATIENT
  Age: 5 Month
  Sex: Male

DRUGS (6)
  1. DEXAMETHASONE. [Suspect]
     Active Substance: DEXAMETHASONE
     Indication: BRONCHOPULMONARY DYSPLASIA
  2. BECLOMETHASONE [Suspect]
     Active Substance: BECLOMETHASONE
     Indication: BRONCHOPULMONARY DYSPLASIA
  3. BECLOMETHASONE [Suspect]
     Active Substance: BECLOMETHASONE
     Indication: NEONATAL RESPIRATORY DISTRESS SYNDROME
     Route: 065
  4. HYDROCORTISONE. [Suspect]
     Active Substance: HYDROCORTISONE
     Indication: BRONCHOPULMONARY DYSPLASIA
  5. HYDROCORTISONE. [Suspect]
     Active Substance: HYDROCORTISONE
     Indication: NEONATAL RESPIRATORY DISTRESS SYNDROME
     Route: 065
  6. DEXAMETHASONE. [Suspect]
     Active Substance: DEXAMETHASONE
     Indication: NEONATAL RESPIRATORY DISTRESS SYNDROME
     Route: 065

REACTIONS (1)
  - Epstein Barr virus positive mucocutaneous ulcer [Recovered/Resolved]
